FAERS Safety Report 9236060 (Version 2)
Quarter: 2013Q2

REPORT INFORMATION
  Report Type: Spontaneous
  Country: BE (occurrence: None)
  Receive Date: 20130405
  Receipt Date: 20130516
  Transmission Date: 20140414
  Serious: Yes (Other)
  Sender: FDA-Public Use
  Company Number: 2013035251

PATIENT
  Age: 32 Year
  Sex: Male

DRUGS (1)
  1. PRIVIGEN (IMMUNE GLOBULIN INTRAVENOUS (HUMAN) 10% LIQUID) [Suspect]
     Dates: start: 201301

REACTIONS (4)
  - Infection [None]
  - Hepatitis B [None]
  - Hepatitis B surface antibody positive [None]
  - Suspected transmission of an infectious agent via product [None]
